FAERS Safety Report 6550452-6 (Version None)
Quarter: 2010Q1

REPORT INFORMATION
  Report Type: 
  Country: None (occurrence: None)
  Receive Date: 20100121
  Receipt Date: 20100111
  Transmission Date: 20100710
  Serious: Yes (Death)
  Sender: FDA-Public Use
  Company Number: 004545

PATIENT
  Age: 49 Year
  Sex: Female

DRUGS (8)
  1. ALPRAZOLAM [Suspect]
  2. CITALOPRAM [Suspect]
  3. ZIPRASIDONE HCL [Concomitant]
  4. LAMOTRIGINE [Concomitant]
  5. OPIOIDS [Concomitant]
  6. PHENOBARBITAL SRT [Concomitant]
  7. ZOLPIDEM [Concomitant]
  8. LORAZEPAM [Concomitant]

REACTIONS (1)
  - COMPLETED SUICIDE [None]
